FAERS Safety Report 5354823-5 (Version None)
Quarter: 2007Q2

REPORT INFORMATION
  Report Type: 
  Country: None (occurrence: None)
  Receive Date: 20070612
  Receipt Date: 20070531
  Transmission Date: 20071010
  Serious: Yes (Hospitalization, Other)
  Sender: FDA-Public Use
  Company Number: US-PFIZER INC-2006140121

PATIENT
  Sex: Male
  Weight: 102.1 kg

DRUGS (2)
  1. BEXTRA [Suspect]
     Indication: PAIN
  2. BEXTRA [Suspect]
     Indication: BACK PAIN

REACTIONS (2)
  - DEPRESSION [None]
  - ISCHAEMIC STROKE [None]
